FAERS Safety Report 21712157 (Version 1)
Quarter: 2022Q4

REPORT INFORMATION
  Report Type: Spontaneous
  Country: GB (occurrence: GB)
  Receive Date: 20221212
  Receipt Date: 20221212
  Transmission Date: 20230112
  Serious: Yes (Other)
  Sender: FDA-Public Use
  Company Number: None

PATIENT
  Age: 53 Year
  Sex: Female
  Weight: 64 kg

DRUGS (5)
  1. ARIPIPRAZOLE [Suspect]
     Active Substance: ARIPIPRAZOLE
     Indication: Product use in unapproved indication
     Dosage: TAKE ONE TABLET ONCE DAILY IN THE MORNING
     Route: 065
     Dates: start: 20220111
  2. DULOXETINE [Concomitant]
     Active Substance: DULOXETINE
     Indication: Product use in unapproved indication
     Dosage: IN THE MORNING
     Route: 065
     Dates: start: 20220209
  3. ESTRADIOL [Concomitant]
     Active Substance: ESTRADIOL
     Indication: Product use in unapproved indication
     Dosage: APPLY ONCE DAILY
     Route: 065
     Dates: start: 20220912, end: 20221012
  4. PROGESTERONE [Concomitant]
     Active Substance: PROGESTERONE
     Indication: Product use in unapproved indication
     Dosage: AT BEDTIME. TAKE FO...
     Route: 065
     Dates: start: 20220912, end: 20221111
  5. QUETIAPINE [Concomitant]
     Active Substance: QUETIAPINE
     Indication: Product use in unapproved indication
     Dosage: AT NIGHT
     Route: 065
     Dates: start: 20220209

REACTIONS (3)
  - Sedation complication [Recovering/Resolving]
  - Binge eating [Recovering/Resolving]
  - Loss of personal independence in daily activities [Unknown]

NARRATIVE: CASE EVENT DATE: 20221122
